FAERS Safety Report 6824845-3 (Version None)
Quarter: 2010Q3

REPORT INFORMATION
  Report Type: 
  Country: None (occurrence: None)
  Receive Date: 20100708
  Receipt Date: 20070322
  Transmission Date: 20110219
  Serious: Yes (Other)
  Sender: FDA-Public Use
  Company Number: US-PFIZER INC-2006152660

PATIENT
  Sex: Female
  Weight: 63.5 kg

DRUGS (2)
  1. CHANTIX [Suspect]
     Indication: EX-TOBACCO USER
     Dates: start: 20061211
  2. PLAVIX [Concomitant]

REACTIONS (1)
  - BLOOD PRESSURE INCREASED [None]
